FAERS Safety Report 21519983 (Version 1)
Quarter: 2022Q4

REPORT INFORMATION
  Report Type: Spontaneous
  Country: US (occurrence: US)
  Receive Date: 20221028
  Receipt Date: 20221028
  Transmission Date: 20230113
  Serious: No
  Sender: FDA-Public Use
  Company Number: US-009507513-2210USA001544

PATIENT
  Age: 14 Year

DRUGS (2)
  1. ZINPLAVA [Suspect]
     Active Substance: BEZLOTOXUMAB
     Dosage: UNK
     Dates: start: 202209
  2. DIFICID [Concomitant]
     Active Substance: FIDAXOMICIN

REACTIONS (2)
  - Product administered to patient of inappropriate age [Unknown]
  - No adverse event [Unknown]

NARRATIVE: CASE EVENT DATE: 20220901
